FAERS Safety Report 12768235 (Version 1)
Quarter: 2016Q3

REPORT INFORMATION
  Report Type: Report from Study
  Country: US (occurrence: US)
  Receive Date: 20160921
  Receipt Date: 20160921
  Transmission Date: 20161109
  Serious: Yes (Death, Hospitalization, Other)
  Sender: FDA-Public Use
  Company Number: US-GILEAD-2016-0234106

PATIENT
  Age: 64 Year
  Sex: Male

DRUGS (1)
  1. LEDIPASVIR/SOFOSBUVIR [Suspect]
     Active Substance: LEDIPASVIR\SOFOSBUVIR
     Indication: CHRONIC HEPATITIS C
     Dosage: 1 DF, UNK
     Route: 048
     Dates: start: 201605, end: 201606

REACTIONS (5)
  - Coma [Unknown]
  - Peritonitis bacterial [Unknown]
  - Unevaluable event [Unknown]
  - Death [Fatal]
  - Duodenal ulcer [Unknown]

NARRATIVE: CASE EVENT DATE: 2016
